FAERS Safety Report 18359909 (Version 1)
Quarter: 2020Q4

REPORT INFORMATION
  Report Type: Report from Study
  Country: PT (occurrence: PT)
  Receive Date: 20201008
  Receipt Date: 20201008
  Transmission Date: 20210114
  Serious: Yes (Hospitalization, Other)
  Sender: FDA-Public Use
  Company Number: PT-ACCORD-204512

PATIENT
  Age: 63 Year
  Sex: Male

DRUGS (2)
  1. DOCETAXEL. [Suspect]
     Active Substance: DOCETAXEL
     Indication: HORMONE-REFRACTORY PROSTATE CANCER
     Dosage: 75 MG/M2, UNK
     Route: 065
  2. PREDNISOLONE. [Concomitant]
     Active Substance: PREDNISOLONE
     Indication: HORMONE-REFRACTORY PROSTATE CANCER
     Dosage: 5 MG BID
     Route: 065

REACTIONS (7)
  - Respiratory disorder [Unknown]
  - Septic shock [Unknown]
  - Lacrimation increased [Unknown]
  - Cough [Unknown]
  - Ocular toxicity [Unknown]
  - Decreased appetite [Unknown]
  - Neurotoxicity [Unknown]
